FAERS Safety Report 17436058 (Version 5)
Quarter: 2020Q4

REPORT INFORMATION
  Report Type: Spontaneous
  Country: AT (occurrence: AT)
  Receive Date: 20200219
  Receipt Date: 20201224
  Transmission Date: 20210113
  Serious: Yes (Hospitalization, Other)
  Sender: FDA-Public Use
  Company Number: AT-AMGEN-AUTSP2020015787

PATIENT
  Age: 54 Year
  Sex: Female
  Weight: 75 kg

DRUGS (25)
  1. TRASTUZUMAB. [Suspect]
     Active Substance: TRASTUZUMAB
     Dosage: 378 MILLIGRAM, Q3WK
     Route: 041
     Dates: start: 20181123, end: 20181123
  2. PERTUZUMAB. [Suspect]
     Active Substance: PERTUZUMAB
     Indication: HER2 POSITIVE BREAST CANCER
     Dosage: 840 MILLIGRAM, Q3WK
     Route: 042
     Dates: start: 20180328
  3. PACLITAXEL. [Suspect]
     Active Substance: PACLITAXEL
     Indication: BREAST CANCER
     Dosage: 147.76 MILLIGRAM, QWK
     Route: 042
     Dates: start: 20180328, end: 20180409
  4. TAXOL [Suspect]
     Active Substance: PACLITAXEL
     Indication: HER2 POSITIVE BREAST CANCER
     Dosage: 147.76 MILLIGRAM, QWK
     Route: 042
     Dates: start: 20180328
  5. NAVELBINE [Suspect]
     Active Substance: VINORELBINE TARTRATE
     Dosage: 1440 MILLIGRAM
     Route: 048
     Dates: start: 20201008
  6. TRASTUZUMAB EMTANSINE [Suspect]
     Active Substance: ADO-TRASTUZUMAB EMTANSINE
     Indication: HER2 POSITIVE BREAST CANCER
     Dosage: 230.4 MILLIGRAM, Q3WK
     Route: 042
     Dates: start: 20190131, end: 20190517
  7. ENTEROBENE [Concomitant]
     Dosage: UNK
     Dates: start: 20200108
  8. BEPANTHENE [Concomitant]
     Active Substance: DEXPANTHENOL
     Indication: ONYCHOLYSIS
  9. XGEVA [Suspect]
     Active Substance: DENOSUMAB
     Indication: PRODUCT USED FOR UNKNOWN INDICATION
     Dosage: UNK
     Route: 065
     Dates: start: 20191219
  10. PACLITAXEL. [Suspect]
     Active Substance: PACLITAXEL
     Indication: HER2 POSITIVE BREAST CANCER
  11. CAPECITABINE. [Suspect]
     Active Substance: CAPECITABINE
     Indication: BREAST CANCER
     Dosage: 500 MILLIGRAM
     Route: 048
     Dates: start: 20191126, end: 20191218
  12. CAL D VITA [Concomitant]
     Indication: PRODUCT USED FOR UNKNOWN INDICATION
     Dosage: UNK
     Route: 065
     Dates: start: 20190425
  13. BEPANTHENE [Concomitant]
     Active Substance: DEXPANTHENOL
     Indication: CONJUNCTIVITIS
  14. CAPECITABINE. [Suspect]
     Active Substance: CAPECITABINE
     Indication: HER2 POSITIVE BREAST CANCER
  15. PANTOLOC [PANTOPRAZOLE] [Concomitant]
     Active Substance: PANTOPRAZOLE SODIUM
     Indication: PRODUCT USED FOR UNKNOWN INDICATION
     Dosage: UNK
     Route: 065
     Dates: start: 20191011
  16. OCTENISEPT [OCTENIDINE HYDROCHLORIDE;PHENOXYETHANOL] [Concomitant]
     Indication: ONYCHOLYSIS
     Dosage: UNK
     Route: 065
     Dates: start: 20180725
  17. TRASTUZUMAB. [Suspect]
     Active Substance: TRASTUZUMAB
     Indication: HER2 POSITIVE BREAST CANCER
     Dosage: 600 MILLIGRAM, Q3WK
     Route: 042
     Dates: start: 20180328, end: 20180328
  18. NAVELBINE [Suspect]
     Active Substance: VINORELBINE TARTRATE
     Indication: HER2 POSITIVE BREAST CANCER
     Dosage: 50 MICROGRAM
     Route: 048
     Dates: start: 20191011
  19. NERATINIB [Suspect]
     Active Substance: NERATINIB
     Indication: BREAST CANCER
     Dosage: 1440 MILLIGRAM, QD
     Route: 048
     Dates: start: 20200108
  20. DEXAMETHASONE. [Concomitant]
     Active Substance: DEXAMETHASONE
     Indication: PRODUCT USED FOR UNKNOWN INDICATION
     Dosage: UNK
     Route: 065
     Dates: start: 20190628, end: 20190830
  21. VINORELBINE TARTRATE. [Suspect]
     Active Substance: VINORELBINE TARTRATE
     Indication: HER2 POSITIVE BREAST CANCER
     Dosage: 50 MICROGRAM
     Route: 048
     Dates: start: 20191011
  22. KYTRIL [Concomitant]
     Active Substance: GRANISETRON HYDROCHLORIDE
     Indication: PRODUCT USED FOR UNKNOWN INDICATION
     Dosage: UNK
     Route: 065
     Dates: start: 20190628, end: 20190830
  23. TRASTUZUMAB. [Suspect]
     Active Substance: TRASTUZUMAB
     Dosage: 378 MILLIGRAM, Q3WK
     Route: 041
     Dates: start: 20181214
  24. ABRAXANE [Suspect]
     Active Substance: PACLITAXEL
     Indication: HER2 POSITIVE BREAST CANCER
     Dosage: 177.17 MILLIGRAM
     Route: 042
     Dates: start: 20180416
  25. BEPANTHEN EYE [Concomitant]
     Active Substance: DEXPANTHENOL\HYALURONATE SODIUM
     Indication: CONJUNCTIVITIS
     Dosage: UNK
     Route: 065
     Dates: start: 20180619

REACTIONS (6)
  - Pain of skin [Recovered/Resolved]
  - Stomatitis [Recovered/Resolved]
  - Off label use [Unknown]
  - Skin lesion [Recovering/Resolving]
  - Febrile neutropenia [Recovered/Resolved]
  - Tumour pain [Recovered/Resolved]

NARRATIVE: CASE EVENT DATE: 20190920
